FAERS Safety Report 12435862 (Version 2)
Quarter: 2016Q2

REPORT INFORMATION
  Report Type: Spontaneous
  Country: FR (occurrence: FR)
  Receive Date: 20160603
  Receipt Date: 20160610
  Transmission Date: 20160815
  Serious: Yes (Other)
  Sender: FDA-Public Use
  Company Number: FR-ASTRAZENECA-2016SE57521

PATIENT
  Age: 55 Year
  Sex: Male

DRUGS (3)
  1. BYDUREON [Suspect]
     Active Substance: EXENATIDE
     Route: 065
  2. DIAMICRON [Concomitant]
     Active Substance: GLICLAZIDE
  3. METFORMINE [Concomitant]
     Active Substance: METFORMIN HYDROCHLORIDE

REACTIONS (3)
  - Nausea [Unknown]
  - Loss of consciousness [Unknown]
  - Vomiting [Unknown]
